FAERS Safety Report 8939874 (Version 3)
Quarter: 2013Q1

REPORT INFORMATION
  Report Type: Spontaneous
  Country: NO (occurrence: NO)
  Receive Date: 20121203
  Receipt Date: 20130124
  Transmission Date: 20140127
  Serious: Yes (Hospitalization)
  Sender: FDA-Public Use
  Company Number: NO-009507513-1211NOR012677

PATIENT
  Age: 69 Year
  Sex: Male

DRUGS (2)
  1. REMERON [Suspect]
     Dosage: 30 MG, UNK
     Route: 048
     Dates: start: 201103
  2. REMERON [Suspect]
     Dosage: 15 MG, UNK
     Route: 048

REACTIONS (8)
  - Atrial fibrillation [Recovering/Resolving]
  - Arrhythmia [Unknown]
  - Cardiac disorder [Unknown]
  - Heart rate increased [Unknown]
  - Chest pain [Unknown]
  - Extrasystoles [Unknown]
  - Urinary incontinence [Unknown]
  - Glaucoma [Unknown]
